FAERS Safety Report 17292068 (Version 1)
Quarter: 2020Q1

REPORT INFORMATION
  Report Type: Spontaneous
  Country: PT (occurrence: PT)
  Receive Date: 20200121
  Receipt Date: 20200121
  Transmission Date: 20200409
  Serious: Yes (Other)
  Sender: FDA-Public Use
  Company Number: PT-BAYER-2019-212112

PATIENT
  Age: 47 Year
  Sex: Male
  Weight: 172 kg

DRUGS (3)
  1. XANAX [Concomitant]
     Active Substance: ALPRAZOLAM
     Dosage: UNK
  2. XANAX [Concomitant]
     Active Substance: ALPRAZOLAM
  3. ULTRAVIST [Suspect]
     Active Substance: IOPROMIDE
     Indication: COMPUTERISED TOMOGRAM ABDOMEN
     Dosage: 55 ML AO REALIZAR TOMOGRAFIA COMPUTORIZADA
     Route: 042
     Dates: start: 20191120, end: 20191120

REACTIONS (4)
  - Rash papular [Recovered/Resolved]
  - Feeling hot [Recovered/Resolved]
  - Contrast media reaction [Recovered/Resolved]
  - Pruritus [Recovered/Resolved]

NARRATIVE: CASE EVENT DATE: 20191120
